FAERS Safety Report 6010916-0 (Version None)
Quarter: 2008Q4

REPORT INFORMATION
  Report Type: 
  Country: None (occurrence: None)
  Receive Date: 20081218
  Receipt Date: 20081217
  Transmission Date: 20090506
  Serious: Yes (Other)
  Sender: FDA-Public Use
  Company Number: A0760838A

PATIENT
  Sex: Male

DRUGS (3)
  1. NICORETTE [Suspect]
     Indication: SMOKING CESSATION THERAPY
     Route: 002
     Dates: start: 20081203
  2. ANTI-HYPERTENSIVE [Concomitant]
     Indication: HYPERTENSION
  3. ANTI-HYPERCHOLESTEROLAEMIC [Concomitant]

REACTIONS (5)
  - CHLOROPSIA [None]
  - DRUG ADMINISTRATION ERROR [None]
  - HOT FLUSH [None]
  - PALPITATIONS [None]
  - VISUAL IMPAIRMENT [None]
